FAERS Safety Report 24392469 (Version 1)
Quarter: 2024Q4

REPORT INFORMATION
  Report Type: Spontaneous
  Country: JP (occurrence: JP)
  Receive Date: 20241003
  Receipt Date: 20241003
  Transmission Date: 20250114
  Serious: Yes (Other)
  Sender: Haleon PLC
  Company Number: JP-HALEON-2199641

PATIENT
  Age: 5 Decade
  Sex: Female

DRUGS (1)
  1. ALLI [Suspect]
     Active Substance: ORLISTAT
     Indication: Product used for unknown indication
     Dosage: TIME INTERVAL: AS NECESSARY: DOSAGE FORM, PACKAGING DETAILS, SERIAL NUMBER, USAGE STATUS: UNKNOWN

REACTIONS (2)
  - Haematochezia [Unknown]
  - Anxiety [Not Recovered/Not Resolved]
